FAERS Safety Report 6628531-4 (Version None)
Quarter: 2010Q1

REPORT INFORMATION
  Report Type: 
  Country: None (occurrence: None)
  Receive Date: 20100311
  Receipt Date: 20100309
  Transmission Date: 20100710
  Serious: Yes (Other)
  Sender: FDA-Public Use
  Company Number: US-SANOFI-AVENTIS-A03200902606

PATIENT
  Sex: Female
  Weight: 78.5 kg

DRUGS (6)
  1. CLOPIDOGREL BISULFATE [Suspect]
     Dosage: UNIT DOSE: 75 MG
     Route: 048
     Dates: start: 20090501, end: 20090901
  2. CLOPIDOGREL BISULFATE [Suspect]
     Route: 048
     Dates: start: 20080801, end: 20090501
  3. BUSPIRONE HCL [Concomitant]
     Indication: POST-TRAUMATIC STRESS DISORDER
     Route: 065
     Dates: start: 19980110
  4. SIMVASTATIN [Concomitant]
     Route: 065
     Dates: start: 20080709
  5. SERTRALINE HCL [Concomitant]
     Indication: POST-TRAUMATIC STRESS DISORDER
     Route: 065
     Dates: start: 19980110
  6. ASPIRIN [Concomitant]
     Route: 048
     Dates: start: 20080901

REACTIONS (16)
  - ABNORMAL FAECES [None]
  - BLEEDING TIME PROLONGED [None]
  - CONTUSION [None]
  - DERMATITIS ACNEIFORM [None]
  - DIABETES MELLITUS [None]
  - DIZZINESS [None]
  - DRUG DISPENSING ERROR [None]
  - FEELING JITTERY [None]
  - HEADACHE [None]
  - MUSCLE SPASMS [None]
  - OEDEMA [None]
  - OVERDOSE [None]
  - POLLAKIURIA [None]
  - URINARY TRACT INFECTION [None]
  - URINE ODOUR ABNORMAL [None]
  - VERTIGO [None]
